FAERS Safety Report 6168328-5 (Version None)
Quarter: 2009Q2

REPORT INFORMATION
  Report Type: 
  Country: None (occurrence: None)
  Receive Date: 20090423
  Receipt Date: 20090416
  Transmission Date: 20091009
  Serious: Yes (Hospitalization)
  Sender: FDA-Public Use
  Company Number: GXKR2009PL04707

PATIENT
  Age: 49 Year
  Sex: Female
  Weight: 74 kg

DRUGS (4)
  1. KETONAL (NGX) (KEOTPROFEN) 100MG [Suspect]
     Indication: BACK PAIN
     Dosage: 300MG DAILY ORAL
     Route: 048
     Dates: start: 20090316, end: 20090319
  2. ACENOCOUMAROL (ACENOCOUMAROL) [Suspect]
     Indication: ATRIAL FIBRILLATION
     Dosage: 2 MG DAILY ORAL
     Route: 048
     Dates: end: 20090319
  3. SOTALOL HCL [Concomitant]
  4. RAMIPRIL [Concomitant]

REACTIONS (1)
  - HAEMATURIA [None]
